FAERS Safety Report 12561430 (Version 3)
Quarter: 2017Q3

REPORT INFORMATION
  Report Type: Spontaneous
  Country: CN (occurrence: CN)
  Receive Date: 20160715
  Receipt Date: 20170822
  Transmission Date: 20171127
  Serious: Yes (Other)
  Sender: FDA-Public Use
  Company Number: CN-PFIZER INC-2016344450

PATIENT
  Age: 36 Year
  Sex: Female

DRUGS (9)
  1. OXALIPLATIN. [Concomitant]
     Active Substance: OXALIPLATIN
     Indication: ADENOCARCINOMA OF COLON
     Dosage: 7 COURSES
  2. IRINOTECAN HCL [Suspect]
     Active Substance: IRINOTECAN HYDROCHLORIDE
     Indication: ADENOCARCINOMA OF COLON
     Dosage: 300 MG, FOR 90 MIN ON DAY 1; TEN COURSES
     Route: 042
  3. FLUOROURACIL. [Suspect]
     Active Substance: FLUOROURACIL
     Dosage: 4400 MG, FOR 46 H; TEN COURSES
     Route: 042
  4. LEUCOVORIN. [Suspect]
     Active Substance: LEUCOVORIN
     Indication: ADENOCARCINOMA OF COLON
     Dosage: 300 MG, FOR 2 H; TEN COURSES
     Route: 042
  5. CAPECITABINE. [Concomitant]
     Active Substance: CAPECITABINE
     Indication: ADENOCARCINOMA OF COLON
     Dosage: 7 COURSES
  6. BEVACIZUMAB. [Suspect]
     Active Substance: BEVACIZUMAB
     Indication: ADENOCARCINOMA OF COLON
     Dosage: 300 MG, EVERY 2 WEEKS; TEN COURSES
  7. FLUOROURACIL. [Suspect]
     Active Substance: FLUOROURACIL
     Indication: ADENOCARCINOMA OF COLON
     Dosage: 600 MG, FOR 30 MIN; TEN COURSES
     Route: 042
  8. FLUOROURACIL. [Suspect]
     Active Substance: FLUOROURACIL
     Dosage: MONOCHEMOTHERAPY
  9. RALTITREXED [Concomitant]
     Active Substance: RALTITREXED
     Indication: ADENOCARCINOMA OF COLON
     Dosage: UNK

REACTIONS (1)
  - Cutaneous tuberculosis [Recovered/Resolved]
